FAERS Safety Report 6469508-1 (Version None)
Quarter: 2009Q4

REPORT INFORMATION
  Report Type: 
  Country: None (occurrence: None)
  Receive Date: 20091203
  Receipt Date: 20091130
  Transmission Date: 20100525
  Serious: Yes (Other)
  Sender: FDA-Public Use
  Company Number: SE-SANOFI-AVENTIS-2009SA005176

PATIENT
  Age: 38 Year
  Sex: Male

DRUGS (3)
  1. ENOXAPARIN SODIUM [Suspect]
     Indication: PULMONARY EMBOLISM
     Route: 058
     Dates: start: 20091030, end: 20091109
  2. FRAGMIN [Concomitant]
     Route: 058
     Dates: start: 20091028, end: 20091029
  3. FRAGMIN [Concomitant]
     Route: 058
     Dates: start: 20091030, end: 20091030

REACTIONS (1)
  - LIVER FUNCTION TEST ABNORMAL [None]
